FAERS Safety Report 22143323 (Version 2)
Quarter: 2023Q2

REPORT INFORMATION
  Report Type: Report from Study
  Country: BR (occurrence: BR)
  Receive Date: 20230327
  Receipt Date: 20230405
  Transmission Date: 20230721
  Serious: Yes (Hospitalization, Other)
  Sender: FDA-Public Use
  Company Number: BR-BIOGEN-2023BI01194733

PATIENT
  Sex: Female
  Weight: 74 kg

DRUGS (4)
  1. AVONEX PEN [Suspect]
     Active Substance: INTERFERON BETA-1A
     Indication: Multiple sclerosis
     Route: 050
     Dates: start: 2010, end: 2014
  2. AVONEX PEN [Suspect]
     Active Substance: INTERFERON BETA-1A
     Route: 050
     Dates: start: 2014, end: 2022
  3. AVONEX PEN [Suspect]
     Active Substance: INTERFERON BETA-1A
  4. AVONEX PEN [Suspect]
     Active Substance: INTERFERON BETA-1A

REACTIONS (14)
  - Oropharyngeal cancer [Recovered/Resolved]
  - Burning sensation [Recovered/Resolved]
  - Weight decreased [Recovered/Resolved]
  - Neoplasm malignant [Recovered/Resolved]
  - Asthenia [Recovered/Resolved]
  - Demyelination [Unknown]
  - Ageusia [Recovered/Resolved]
  - Iron deficiency [Recovered/Resolved]
  - Decreased immune responsiveness [Unknown]
  - Eating disorder [Unknown]
  - Malnutrition [Unknown]
  - Blood iron decreased [Unknown]
  - Overdose [Unknown]
  - White blood cell count decreased [Recovered/Resolved]

NARRATIVE: CASE EVENT DATE: 20110101
